FAERS Safety Report 10213674 (Version 1)
Quarter: 2014Q2

REPORT INFORMATION
  Report Type: Spontaneous
  Country: US (occurrence: None)
  Receive Date: 20140602
  Receipt Date: 20140602
  Transmission Date: 20141212
  Serious: No
  Sender: FDA-Public Use
  Company Number: None

PATIENT
  Age: 60 Year
  Sex: Female
  Weight: 83.92 kg

DRUGS (1)
  1. ESTRACE CREAM [Suspect]
     Indication: VULVOVAGINAL DRYNESS
     Dosage: 1 IN. NIGHTLY/2 WEEKS, 3X/WK?AT BEDTIME
     Dates: start: 201401

REACTIONS (1)
  - Thrombophlebitis superficial [None]
